FAERS Safety Report 9339965 (Version 1)
Quarter: 2013Q2

REPORT INFORMATION
  Report Type: Spontaneous
  Country: US (occurrence: US)
  Receive Date: 20130610
  Receipt Date: 20130610
  Transmission Date: 20140414
  Serious: Yes (Hospitalization)
  Sender: FDA-Public Use
  Company Number: US-BRISTOL-MYERS SQUIBB COMPANY-18988824

PATIENT
  Age: 70 Year
  Sex: Male

DRUGS (2)
  1. BYDUREON 2MG SUSPENSION [Suspect]
     Dates: start: 201301
  2. GLIMEPIRIDE [Concomitant]
     Dates: start: 201301

REACTIONS (1)
  - Pancreatitis acute [Recovered/Resolved]
